FAERS Safety Report 8859872 (Version 1)
Quarter: 2012Q4

REPORT INFORMATION
  Report Type: Report from Study
  Country: US (occurrence: US)
  Receive Date: 20121025
  Receipt Date: 20121025
  Transmission Date: 20130627
  Serious: No
  Sender: FDA-Public Use
  Company Number: US-ABBOTT-12P-163-0916977-00

PATIENT
  Sex: Female
  Weight: 81.72 kg

DRUGS (4)
  1. LUPRON DEPOT 3.75 MG [Suspect]
     Indication: ADENOMYOSIS
     Dates: start: 20120106
  2. NORETHINDRONE ACETATE [Suspect]
     Indication: PRODUCT USED FOR UNKNOWN INDICATION
     Dates: start: 201202
  3. CEPHALEXIN [Concomitant]
     Indication: PRODUCT USED FOR UNKNOWN INDICATION
  4. METHOCARBAMOL [Concomitant]
     Indication: PRODUCT USED FOR UNKNOWN INDICATION

REACTIONS (7)
  - Hot flush [Recovered/Resolved]
  - Vulvovaginal dryness [Recovered/Resolved]
  - Metrorrhagia [Not Recovered/Not Resolved]
  - Dysmenorrhoea [Recovering/Resolving]
  - Off label use [Not Recovered/Not Resolved]
  - Adenomyosis [Not Recovered/Not Resolved]
  - Bone pain [Recovered/Resolved]
